FAERS Safety Report 13828804 (Version 2)
Quarter: 2017Q3

REPORT INFORMATION
  Report Type: Spontaneous
  Country: CN (occurrence: CN)
  Receive Date: 20170803
  Receipt Date: 20170809
  Transmission Date: 20171127
  Serious: Yes (Hospitalization)
  Sender: FDA-Public Use
  Company Number: CN-ROCHE-1970913

PATIENT
  Age: 11 Day
  Sex: Female
  Weight: 2.54 kg

DRUGS (2)
  1. ROCEPHIN [Suspect]
     Active Substance: CEFTRIAXONE SODIUM
     Indication: INFECTION
     Route: 041
     Dates: start: 20170328, end: 20170401
  2. SODIUM CHLORIDE. [Concomitant]
     Active Substance: SODIUM CHLORIDE
     Route: 041
     Dates: start: 20170328, end: 20170401

REACTIONS (2)
  - Diarrhoea neonatal [Recovering/Resolving]
  - Blood fibrinogen decreased [Recovering/Resolving]

NARRATIVE: CASE EVENT DATE: 20170331
